FAERS Safety Report 9378612 (Version 1)
Quarter: 2013Q2

REPORT INFORMATION
  Report Type: Spontaneous
  Country: AU (occurrence: None)
  Receive Date: 20130626
  Receipt Date: 20130626
  Transmission Date: 20140414
  Serious: Yes (Other)
  Sender: FDA-Public Use
  Company Number: 2013/132

PATIENT
  Age: 4 Year
  Sex: Female

DRUGS (1)
  1. VENLAFAXINE [Suspect]

REACTIONS (11)
  - Accidental exposure to product by child [None]
  - Urinary incontinence [None]
  - Locked-in syndrome [None]
  - Drooling [None]
  - Tachycardia [None]
  - Blood pressure decreased [None]
  - Muscle rigidity [None]
  - Extrapyramidal disorder [None]
  - Autonomic nervous system imbalance [None]
  - Hypertension [None]
  - Bradykinesia [None]
